FAERS Safety Report 5248530-7 (Version None)
Quarter: 2007Q1

REPORT INFORMATION
  Report Type: 
  Country: None (occurrence: None)
  Receive Date: 20070227
  Receipt Date: 20070215
  Transmission Date: 20070707
  Serious: Yes (Life-Threatening, Hospitalization)
  Sender: FDA-Public Use
  Company Number: US-PFIZER INC-2007012778

PATIENT
  Sex: Male
  Weight: 42.2 kg

DRUGS (4)
  1. GENOTROPIN [Suspect]
     Indication: HYPOPITUITARISM
     Route: 058
     Dates: start: 20051104, end: 20060217
  2. LEVOTHYROXINE SODIUM [Concomitant]
     Route: 048
  3. TRILEPTAL [Concomitant]
     Route: 048
  4. VITAMIN CAP [Concomitant]
     Route: 048
     Dates: end: 20060201

REACTIONS (2)
  - BRAIN NEOPLASM MALIGNANT [None]
  - NEOPLASM RECURRENCE [None]
